FAERS Safety Report 8701741 (Version 4)
Quarter: 2013Q4

REPORT INFORMATION
  Report Type: Spontaneous
  Country: US (occurrence: US)
  Receive Date: 20120803
  Receipt Date: 20131031
  Transmission Date: 20140711
  Serious: Yes (Other)
  Sender: FDA-Public Use
  Company Number: US-009507513-1208USA000248

PATIENT
  Age: 47 Year
  Sex: Female
  Weight: 136.5 kg

DRUGS (6)
  1. JANUMET XR [Suspect]
     Indication: TYPE 2 DIABETES MELLITUS
     Dosage: 50/100 MG , BID
     Route: 048
     Dates: start: 20120621, end: 201206
  2. JANUMET XR [Suspect]
     Dosage: UNK
     Route: 048
     Dates: start: 20120720
  3. JANUMET XR [Suspect]
     Dosage: UNK
  4. LANTUS [Concomitant]
     Dosage: 15 IU, HS
     Dates: end: 2012
  5. LANTUS [Concomitant]
     Dosage: 30 IU, HS
  6. METFORMIN [Suspect]
     Indication: DIABETES MELLITUS
     Dosage: 1000 MG, TID

REACTIONS (5)
  - Blood glucose increased [Recovered/Resolved]
  - Fatigue [Recovered/Resolved]
  - Polyuria [Recovered/Resolved]
  - Abdominal discomfort [Recovered/Resolved]
  - Drug ineffective [Recovered/Resolved]
